FAERS Safety Report 5415736-3 (Version None)
Quarter: 2007Q3

REPORT INFORMATION
  Report Type: 
  Country: None (occurrence: None)
  Receive Date: 20070731
  Receipt Date: 20070603
  Transmission Date: 20080115
  Serious: No
  Sender: FDA-Public Use
  Company Number: US200706000565

PATIENT
  Age: 62 Year
  Sex: Female

DRUGS (6)
  1. BYETTA [Suspect]
     Indication: TYPE 2 DIABETES MELLITUS
     Dosage: 5 UG,2/D,SUBCUTANEOUS
     Route: 058
     Dates: start: 20070523
  2. DYAZIDE [Concomitant]
  3. METFORMIN HCL [Concomitant]
  4. GLUCOTROL [Concomitant]
  5. PRECOSE [Concomitant]
  6. FUROSEMIDE [Concomitant]

REACTIONS (2)
  - ASTHENIA [None]
  - BLOOD GLUCOSE INCREASED [None]
